FAERS Safety Report 5871770-0 (Version None)
Quarter: 2008Q3

REPORT INFORMATION
  Report Type: 
  Country: None (occurrence: None)
  Receive Date: 20080904
  Receipt Date: 20080904
  Transmission Date: 20090109
  Serious: No
  Sender: FDA-Public Use
  Company Number: None

PATIENT
  Sex: Male

DRUGS (1)
  1. PREVALITE [Suspect]
     Indication: POST GASTRIC SURGERY SYNDROME
     Dosage: TAKE CONTENTS OF ONE PACKET IN LIQUID BY MOUTH ONCE DAILY
     Route: 048

REACTIONS (2)
  - DRUG EFFECT DECREASED [None]
  - PHARMACEUTICAL PRODUCT COMPLAINT [None]
